FAERS Safety Report 15279896 (Version 2)
Quarter: 2018Q3

REPORT INFORMATION
  Report Type: Report from Study
  Country: None (occurrence: GB)
  Receive Date: 20180815
  Receipt Date: 20180825
  Transmission Date: 20181010
  Serious: Yes (Hospitalization)
  Sender: FDA-Public Use
  Company Number: GB-ABBVIE-18K-167-2450716-00

PATIENT
  Age: 32 Year
  Sex: Female
  Weight: 109.1 kg

DRUGS (2)
  1. HUMIRA [Suspect]
     Active Substance: ADALIMUMAB
     Route: 058
     Dates: start: 20180619
  2. HUMIRA [Suspect]
     Active Substance: ADALIMUMAB
     Indication: PSORIASIS
     Route: 058
     Dates: start: 20171108, end: 20180525

REACTIONS (3)
  - Peritoneal lavage [Unknown]
  - Cervical dysplasia [Unknown]
  - Post procedural infection [Unknown]

NARRATIVE: CASE EVENT DATE: 201805
